FAERS Safety Report 5882174-9 (Version None)
Quarter: 2008Q3

REPORT INFORMATION
  Report Type: 
  Country: None (occurrence: None)
  Receive Date: 20080912
  Receipt Date: 20080724
  Transmission Date: 20090109
  Serious: No
  Sender: FDA-Public Use
  Company Number: US-ABBOTT-08P-163-0466120-00

PATIENT
  Sex: Male
  Weight: 24.97 kg

DRUGS (6)
  1. HUMIRA [Suspect]
     Indication: CROHN'S DISEASE
     Route: 050
     Dates: start: 20080605, end: 20080605
  2. HUMIRA [Suspect]
     Route: 050
     Dates: start: 20080619, end: 20080619
  3. HUMIRA [Suspect]
     Route: 050
     Dates: start: 20080703, end: 20080703
  4. HUMIRA [Suspect]
     Route: 050
     Dates: start: 20080717
  5. MERCAPTOPURINE [Concomitant]
     Indication: DRUG USE FOR UNKNOWN INDICATION
     Route: 048
  6. IRON [Concomitant]
     Indication: ANAEMIA
     Route: 048

REACTIONS (2)
  - DRUG INEFFECTIVE [None]
  - INJECTION SITE IRRITATION [None]
